FAERS Safety Report 8152070-5 (Version None)
Quarter: 2012Q1

REPORT INFORMATION
  Report Type: 
  Country: None (occurrence: None)
  Receive Date: 20120221
  Receipt Date: 20120214
  Transmission Date: 20120608
  Serious: Yes (Other)
  Sender: FDA-Public Use
  Company Number: GR-PFIZER INC-2012039535

PATIENT
  Sex: Female

DRUGS (2)
  1. EFFEXOR XR [Suspect]
     Dosage: 75 MG
  2. FLUOXETINE [Concomitant]
     Dosage: UNK

REACTIONS (2)
  - EYE SWELLING [None]
  - DYSPNOEA [None]
